FAERS Safety Report 4699548-4 (Version None)
Quarter: 2005Q2

REPORT INFORMATION
  Report Type: 
  Country: None (occurrence: None)
  Receive Date: 20050622
  Receipt Date: 20050617
  Transmission Date: 20051028
  Serious: Yes (Other)
  Sender: FDA-Public Use
  Company Number: HQWYE515617JUN05

PATIENT
  Age: 26 Year
  Sex: Female

DRUGS (2)
  1. ADVIL [Suspect]
     Indication: PAIN
     Dosage: 1 CAPSULE 1X PER 1 DAY, ORAL
     Route: 048
     Dates: start: 20050616, end: 20050617
  2. UNSPCEIFIED CONTRACEPTIVE(UNSPECIFIED CONTRACEPTIVE) [Concomitant]

REACTIONS (1)
  - ANAPHYLACTIC REACTION [None]
